FAERS Safety Report 18595865 (Version 1)
Quarter: 2020Q4

REPORT INFORMATION
  Report Type: Spontaneous
  Country: US (occurrence: US)
  Receive Date: 20201209
  Receipt Date: 20201209
  Transmission Date: 20210114
  Serious: No
  Sender: FDA-Public Use
  Company Number: US-SUPERNUS PHARMACEUTICALS, INC.-2020SUP00003

PATIENT
  Age: 62 Year
  Sex: Female
  Weight: 68.03 kg

DRUGS (10)
  1. TROKENDI XR [Suspect]
     Active Substance: TOPIRAMATE
     Indication: MIGRAINE PROPHYLAXIS
     Dosage: 50 MG ^SAMPLES^, 1X/DAY
     Route: 048
     Dates: start: 20191206, end: 20191219
  2. TROKENDI XR [Suspect]
     Active Substance: TOPIRAMATE
     Indication: MIGRAINE PROPHYLAXIS
     Dosage: 100 MG ^SAMPLES^, 1X/DAY
     Route: 048
     Dates: start: 20191220
  3. LEVOTHYROXINE. [Concomitant]
     Active Substance: LEVOTHYROXINE
  4. LIOTHYRONINE [Concomitant]
     Active Substance: LIOTHYRONINE
  5. HYDROCODONE [Concomitant]
     Active Substance: HYDROCODONE
     Dosage: UNK, AS NEEDED
  6. OMEPRAZOLE. [Concomitant]
     Active Substance: OMEPRAZOLE
     Dosage: UNK, EVERY 72 HOURS
  7. OMEPRAZOLE. [Concomitant]
     Active Substance: OMEPRAZOLE
     Dosage: UNK, 1X/DAY
  8. EFFEXOR [Concomitant]
     Active Substance: VENLAFAXINE HYDROCHLORIDE
     Dosage: 300 MG
  9. TROKENDI XR [Suspect]
     Active Substance: TOPIRAMATE
     Dosage: 100 MG ^SAMPLES^, 1X/DAY AFTER SHE EATS
     Route: 048
  10. SIMVASTATIN. [Concomitant]
     Active Substance: SIMVASTATIN
     Dosage: 5 MG

REACTIONS (2)
  - Dyspepsia [Recovering/Resolving]
  - Abdominal pain upper [Recovering/Resolving]

NARRATIVE: CASE EVENT DATE: 201912
